FAERS Safety Report 4663257-8 (Version None)
Quarter: 2005Q2

REPORT INFORMATION
  Report Type: 
  Country: None (occurrence: None)
  Receive Date: 20050513
  Receipt Date: 20050411
  Transmission Date: 20051028
  Serious: Yes (Hospitalization)
  Sender: FDA-Public Use
  Company Number: ACC000015

PATIENT
  Age: 55 Year
  Sex: Male

DRUGS (1)
  1. HEPARIN SODIUM ACC (HEPARIN SODIUM) [Suspect]

REACTIONS (8)
  - COAGULOPATHY [None]
  - ECHOCARDIOGRAM ABNORMAL [None]
  - HAEMODIALYSIS [None]
  - HEPARIN-INDUCED THROMBOCYTOPENIA [None]
  - INTRACARDIAC THROMBUS [None]
  - LEG AMPUTATION [None]
  - RENAL FAILURE ACUTE [None]
  - THROMBOSIS [None]
